FAERS Safety Report 17507220 (Version 2)
Quarter: 2023Q1

REPORT INFORMATION
  Report Type: Spontaneous
  Country: US (occurrence: US)
  Receive Date: 20200306
  Receipt Date: 20230328
  Transmission Date: 20230417
  Serious: No
  Sender: FDA-Public Use
  Company Number: US-GLAXOSMITHKLINE-US2020038786

PATIENT

DRUGS (1)
  1. NICORETTE [Suspect]
     Active Substance: NICOTINE
     Indication: Smoking cessation therapy
     Dosage: UNK

REACTIONS (5)
  - Blood blister [Unknown]
  - Product package associated injury [Unknown]
  - Dysgeusia [Unknown]
  - Incorrect dose administered [Unknown]
  - Product complaint [Unknown]
